FAERS Safety Report 5689934-8 (Version None)
Quarter: 2008Q1

REPORT INFORMATION
  Report Type: 
  Country: None (occurrence: None)
  Receive Date: 20080331
  Receipt Date: 20080331
  Transmission Date: 20080703
  Serious: No
  Sender: FDA-Public Use
  Company Number: None

PATIENT
  Age: 58 Year
  Sex: Female
  Weight: 72.1219 kg

DRUGS (3)
  1. CAPECITABINE, 500 MG CAPS [Suspect]
     Indication: BREAST CANCER METASTATIC
     Dosage: 1500 MG BIDX14D, Q21DAYS PO
     Route: 048
     Dates: start: 20080114
  2. PHENYTOIN, EXTENDED RELEASE, 100 MG CAPS [Suspect]
     Indication: CONVULSION
     Dosage: 300 MG QHS PO
     Route: 048
     Dates: start: 20071106
  3. LISINOPRIL [Concomitant]

REACTIONS (6)
  - DIZZINESS [None]
  - DRUG INTERACTION [None]
  - DRUG TOXICITY [None]
  - FATIGUE [None]
  - FEELING ABNORMAL [None]
  - VISION BLURRED [None]
